FAERS Safety Report 14859023 (Version 3)
Quarter: 2021Q4

REPORT INFORMATION
  Report Type: Spontaneous
  Country: US (occurrence: US)
  Receive Date: 20180508
  Receipt Date: 20211129
  Transmission Date: 20220303
  Serious: Yes (Hospitalization, Disabling)
  Sender: FDA-Public Use
  Company Number: US-TEVA-773449USA

PATIENT
  Age: 39 Year
  Sex: Female
  Weight: 102.9 kg

DRUGS (15)
  1. DOCETAXEL [Suspect]
     Active Substance: DOCETAXEL
     Indication: Uterine leiomyosarcoma
     Dosage: 75 MG/ M2, NUMBER OF CYCLE - 06, FREQUENCY - EVERY THREE WEEKS, 20 MG/ML VIAL
     Route: 042
     Dates: start: 20140109, end: 20140422
  2. DOCETAXEL [Suspect]
     Active Substance: DOCETAXEL
     Dosage: 75 MG/ M2, NUMBER OF CYCLE - 06, FREQUENCY - EVERY THREE WEEKS. 80MG/4ML VIAL
     Route: 042
     Dates: start: 20140109, end: 20140422
  3. GEMCITABINE [Suspect]
     Active Substance: GEMCITABINE
     Indication: Uterine leiomyosarcoma
     Dosage: DAY 1 AND DAY 8 OF 21 DAY CYCLE
     Route: 042
     Dates: start: 20140109, end: 20140422
  4. HYDROCHLOROTHIAZIDE [Suspect]
     Active Substance: HYDROCHLOROTHIAZIDE
     Indication: Hypertension
     Dosage: 50 MILLIGRAM DAILY; DAILY WITH BREAKFAST
     Route: 048
     Dates: start: 2008
  5. DOCETAXEL [Suspect]
     Active Substance: DOCETAXEL
     Indication: Uterine leiomyosarcoma
     Dosage: 75 MG/ M2, NUMBER OF CYCLE - 06, FREQUENCY - EVERY THREE WEEKS, 20MG/ML VIAL
     Route: 042
     Dates: start: 20140109, end: 20140422
  6. DOCETAXEL [Suspect]
     Active Substance: DOCETAXEL
     Dosage: 75 MG/ M2, NUMBER OF CYCLE - 06, FREQUENCY - EVERY THREE WEEKS, 80MG/4ML VIAL
     Route: 042
     Dates: start: 20140109, end: 20140422
  7. DOCETAXEL [Suspect]
     Active Substance: DOCETAXEL
     Indication: Uterine leiomyosarcoma
     Dosage: 75 MG/ M2, NUMBER OF CYCLE - 06, FREQUENCY - EVERY THREE WEEKS, 20MG/ML VIAL
     Route: 042
     Dates: start: 20140109, end: 20140422
  8. DOCETAXEL [Suspect]
     Active Substance: DOCETAXEL
     Dosage: 75 MG/ M2, NUMBER OF CYCLE - 06, FREQUENCY - EVERY THREE WEEKS, 80MG/4ML
     Route: 042
     Dates: start: 20140109, end: 20140422
  9. NEULASTA [Concomitant]
     Active Substance: PEGFILGRASTIM
     Indication: Uterine leiomyosarcoma
     Dosage: CHEMOTHERAPY CYCLE ON DAY 8
     Route: 058
     Dates: start: 20140204
  10. IRON [Concomitant]
     Active Substance: IRON
     Dosage: DOSE: 150 (UNITS NOT REPORTED)
     Route: 048
     Dates: start: 2002
  11. LORTAB [Concomitant]
     Active Substance: ACETAMINOPHEN\HYDROCODONE BITARTRATE
     Indication: Pain
     Dosage: HYDROCODONE 10 MG/ PARACETAMOL 500 MG
     Route: 048
     Dates: start: 201312
  12. DIPHENHYDRAMINE [Concomitant]
     Active Substance: DIPHENHYDRAMINE
     Route: 048
     Dates: start: 201312
  13. PROCHLORPERAZINE [Concomitant]
     Active Substance: PROCHLORPERAZINE
     Indication: Prophylaxis of nausea and vomiting
     Dosage: 40 MILLIGRAM DAILY;
     Route: 048
     Dates: start: 20140109
  14. ONDANSETRON [Concomitant]
     Active Substance: ONDANSETRON
     Dosage: 8 MILLIGRAM DAILY;
     Route: 048
     Dates: start: 20140121
  15. DEXAMETHASONE [Concomitant]
     Active Substance: DEXAMETHASONE
     Dosage: 4 MILLIGRAM DAILY; 2 TABLETS IN MORNING AND AFTERNOON THE DAY BEFORE AND DAY AFTER DOCETAXEL TREATME
     Route: 048
     Dates: start: 20140116

REACTIONS (22)
  - Alopecia totalis [Recovered/Resolved]
  - Alopecia areata [Recovered/Resolved]
  - Madarosis [Recovered/Resolved]
  - Neuropathy peripheral [Not Recovered/Not Resolved]
  - Hypoaesthesia [Not Recovered/Not Resolved]
  - Gait disturbance [Not Recovered/Not Resolved]
  - Menopausal symptoms [Not Recovered/Not Resolved]
  - Hot flush [Not Recovered/Not Resolved]
  - Night sweats [Not Recovered/Not Resolved]
  - Hypertension [Recovering/Resolving]
  - Dizziness [Unknown]
  - Fall [Unknown]
  - Vertigo [Unknown]
  - Balance disorder [Not Recovered/Not Resolved]
  - Oedema [Unknown]
  - Neuralgia [Not Recovered/Not Resolved]
  - Fatigue [Not Recovered/Not Resolved]
  - Myalgia [Not Recovered/Not Resolved]
  - Paraesthesia [Unknown]
  - Hypotension [Unknown]
  - Hair texture abnormal [Recovered/Resolved]
  - Hair colour changes [Recovered/Resolved]

NARRATIVE: CASE EVENT DATE: 20140101
